FAERS Safety Report 5531940-8 (Version None)
Quarter: 2007Q4

REPORT INFORMATION
  Report Type: 
  Country: None (occurrence: None)
  Receive Date: 20071128
  Receipt Date: 20071128
  Transmission Date: 20080405
  Serious: No
  Sender: FDA-Public Use
  Company Number: None

PATIENT
  Age: 68 Year
  Sex: Female
  Weight: 72.5755 kg

DRUGS (1)
  1. TRIAMCINOLONE ACETONIDE [Suspect]
     Indication: DERMATITIS CONTACT
     Dosage: APPLICATION  2X DAY  TOP
     Route: 061
     Dates: start: 20071121, end: 20071122

REACTIONS (5)
  - BURNING SENSATION [None]
  - DYSPNOEA [None]
  - ERYTHEMA [None]
  - HYPERVENTILATION [None]
  - PRURITUS [None]
